FAERS Safety Report 5133671-5 (Version None)
Quarter: 2006Q4

REPORT INFORMATION
  Report Type: 
  Country: None (occurrence: None)
  Receive Date: 20061024
  Receipt Date: 20060726
  Transmission Date: 20070319
  Serious: Yes (Hospitalization)
  Sender: FDA-Public Use
  Company Number: GB-ROCHE-456882

PATIENT
  Age: 43 Year
  Sex: Female
  Weight: 95 kg

DRUGS (7)
  1. CAPECITABINE [Suspect]
     Dosage: DAYS 1-14 OF A 21 DAY CYCLE. 2 CYCLES.
     Route: 048
     Dates: start: 20060612, end: 20060718
  2. CODEINE PHOSPHATE [Concomitant]
     Indication: DIARRHOEA
     Route: 048
  3. ORAMORPH SR [Concomitant]
     Indication: ABDOMINAL PAIN
     Route: 048
  4. BUSCOPAN [Concomitant]
     Indication: ABDOMINAL PAIN
     Route: 048
  5. FELODIPINE [Concomitant]
     Indication: HYPERTENSION
     Route: 048
  6. LOSEC [Concomitant]
     Route: 048
  7. LOPERAMIDE [Concomitant]
     Indication: DIARRHOEA
     Route: 048

REACTIONS (1)
  - INTESTINAL OBSTRUCTION [None]
